FAERS Safety Report 9216885 (Version 2)
Quarter: 2013Q2

REPORT INFORMATION
  Report Type: Spontaneous
  Country: IT (occurrence: IT)
  Receive Date: 20130408
  Receipt Date: 20130424
  Transmission Date: 20140414
  Serious: Yes (Other)
  Sender: FDA-Public Use
  Company Number: IT-PFIZER INC-2013110728

PATIENT
  Age: 39 Year
  Sex: Female

DRUGS (1)
  1. EFEXOR ER [Suspect]
     Indication: DEPRESSION
     Dosage: 75 MG, 1X/DAY
     Route: 048
     Dates: start: 20121222, end: 20130322

REACTIONS (1)
  - Hypertensive crisis [Recovering/Resolving]
